FAERS Safety Report 22141794 (Version 1)
Quarter: 2023Q1

REPORT INFORMATION
  Report Type: Spontaneous
  Country: US (occurrence: None)
  Receive Date: 20230326
  Receipt Date: 20230326
  Transmission Date: 20230417
  Serious: No
  Sender: FDA-Public Use
  Company Number: None

PATIENT
  Age: 33 Year
  Sex: Female
  Weight: 65.25 kg

DRUGS (1)
  1. DULOXETINE [Suspect]
     Active Substance: DULOXETINE
     Indication: Pain
     Dates: start: 20230203, end: 20230205

REACTIONS (3)
  - Tremor [None]
  - Tremor [None]
  - Chills [None]

NARRATIVE: CASE EVENT DATE: 20230203
